FAERS Safety Report 21364641 (Version 1)
Quarter: 2022Q3

REPORT INFORMATION
  Report Type: Spontaneous
  Country: US (occurrence: None)
  Receive Date: 20220922
  Receipt Date: 20220922
  Transmission Date: 20221027
  Serious: Yes (unspecified)
  Sender: FDA-Public Use
  Company Number: None

PATIENT
  Age: 39 Year
  Sex: Male
  Weight: 95.9 kg

DRUGS (1)
  1. LAPINE T-LYMPHOCYTE IMMUNE GLOBULIN [Suspect]
     Active Substance: LAPINE T-LYMPHOCYTE IMMUNE GLOBULIN
     Indication: Lung transplant
     Dosage: OTHER FREQUENCY : ONCE;?
     Route: 041
     Dates: start: 20220921, end: 20220921

REACTIONS (3)
  - Hypertension [None]
  - Agitation [None]
  - Chills [None]

NARRATIVE: CASE EVENT DATE: 20220921
